FAERS Safety Report 6811022-5 (Version None)
Quarter: 2010Q2

REPORT INFORMATION
  Report Type: 
  Country: None (occurrence: None)
  Receive Date: 20100630
  Receipt Date: 20090127
  Transmission Date: 20101027
  Serious: No
  Sender: FDA-Public Use
  Company Number: US-PFIZER INC-2009162746

PATIENT
  Sex: Male

DRUGS (1)
  1. GLIBENCLAMIDE [Suspect]
     Indication: BLOOD GLUCOSE ABNORMAL

REACTIONS (1)
  - DRUG INEFFECTIVE [None]
